FAERS Safety Report 23713503 (Version 3)
Quarter: 2024Q2

REPORT INFORMATION
  Report Type: Spontaneous
  Country: US (occurrence: US)
  Receive Date: 20240405
  Receipt Date: 20240607
  Transmission Date: 20240716
  Serious: Yes (Life-Threatening, Hospitalization, Other)
  Sender: FDA-Public Use
  Company Number: US-SA-2024SA098217

PATIENT
  Age: 45 Year
  Sex: Female

DRUGS (2)
  1. CAPECITABINE [Suspect]
     Active Substance: CAPECITABINE
     Indication: Adenocarcinoma gastric
     Dosage: UNK
  2. OXALIPLATIN [Suspect]
     Active Substance: OXALIPLATIN
     Indication: Adenocarcinoma gastric
     Dosage: UNK

REACTIONS (7)
  - Cardiogenic shock [Recovering/Resolving]
  - Unresponsive to stimuli [Recovering/Resolving]
  - Cardiotoxicity [Recovering/Resolving]
  - Asthenia [Recovering/Resolving]
  - Ventricular fibrillation [Recovering/Resolving]
  - Cardiac arrest [Recovering/Resolving]
  - Sinus tachycardia [Recovering/Resolving]
